FAERS Safety Report 25633323 (Version 1)
Quarter: 2025Q3

REPORT INFORMATION
  Report Type: Spontaneous
  Country: US (occurrence: US)
  Receive Date: 20250801
  Receipt Date: 20250801
  Transmission Date: 20251021
  Serious: Yes (Other)
  Sender: RANBAXY
  Company Number: US-SUN PHARMACEUTICAL INDUSTRIES LTD-2025R1-520454

PATIENT
  Age: 45 Year
  Sex: Female

DRUGS (3)
  1. OLANZAPINE [Suspect]
     Active Substance: OLANZAPINE
     Indication: Psychotic disorder
     Route: 065
  2. TROSPIUM CHLORIDE\XANOMELINE [Suspect]
     Active Substance: TROSPIUM CHLORIDE\XANOMELINE
     Indication: Psychotic disorder
     Dosage: 50/20 MG, BID
     Route: 065
  3. TROSPIUM CHLORIDE\XANOMELINE [Suspect]
     Active Substance: TROSPIUM CHLORIDE\XANOMELINE
     Dosage: 100/20MG, BID
     Route: 065

REACTIONS (6)
  - Increased appetite [Unknown]
  - Tremor [Recovered/Resolved]
  - Memory impairment [Recovering/Resolving]
  - Constipation [Unknown]
  - Gastrooesophageal reflux disease [Recovered/Resolved]
  - Urinary retention [Unknown]
